FAERS Safety Report 4743878-4 (Version None)
Quarter: 2005Q3

REPORT INFORMATION
  Report Type: 
  Country: None (occurrence: None)
  Receive Date: 20050809
  Receipt Date: 20050323
  Transmission Date: 20060218
  Serious: Yes (Life-Threatening)
  Sender: FDA-Public Use
  Company Number: 805#1#2005-00013

PATIENT
  Age: 80 Year
  Sex: Female

DRUGS (12)
  1. ALPROSTADIL [Suspect]
     Indication: SPINAL COLUMN STENOSIS
     Dosage: 80 MG (40 MCG 2 IN 1 DAY)S
     Route: 041
     Dates: start: 20050310, end: 20050311
  2. LOXOPROFEN SODIUM (LOXOPROFEN SODIUM) [Suspect]
     Indication: SPINAL COLUMN STENOSIS
     Dosage: 180 MG
     Route: 048
     Dates: end: 20050311
  3. TEPRENONE (TEPRENONE) [Suspect]
     Indication: GASTRITIS
     Dosage: 150 MG
     Route: 048
     Dates: end: 20050311
  4. CALCIUM-L-ASPARTATE(ASPARTATE CALCIUM) [Suspect]
     Indication: OSTEOPOROSIS
     Dosage: 600 MG
     Route: 048
     Dates: end: 20050311
  5. AMLODIPINE BESYLATE [Suspect]
     Indication: HYPERTENSION
     Dosage: 2.5 MG
     Route: 048
     Dates: end: 20050311
  6. CALCITRIOL [Suspect]
     Indication: OSTEOPOROSIS
     Dosage: .5 MCG
     Route: 048
     Dates: end: 20050311
  7. SODIUM-FERROUS-CITRATE (FERROUS CITRATE) [Suspect]
     Indication: ANAEMIA
     Dosage: 100 MG
     Route: 048
     Dates: end: 20050311
  8. SALICYLAMIDE/ACETAMINOPHEN/ANHYDROUS-CAFFIENE/PROMETHAZINE -METHYLENED [Suspect]
     Indication: NASOPHARYNGITIS
     Dosage: 3 G
     Route: 048
     Dates: end: 20050311
  9. COCARBOXYLASE (COCARBOXYLASE) [Concomitant]
  10. NEUTROPIN (ORGAN LYSATE,STANDARDIZED) [Concomitant]
  11. ETHYL-ICOSOPENTATE [Suspect]
     Route: 048
     Dates: end: 20050311
  12. MECOBALAMIN [Suspect]
     Dates: end: 20050311

REACTIONS (13)
  - ABASIA [None]
  - EPISTAXIS [None]
  - HAEMATOCRIT DECREASED [None]
  - HAEMOGLOBIN DECREASED [None]
  - HISTIOCYTOSIS HAEMATOPHAGIC [None]
  - HYPOAESTHESIA [None]
  - INFECTION [None]
  - MOUTH HAEMORRHAGE [None]
  - MOUTH ULCERATION [None]
  - PETECHIAE [None]
  - RED BLOOD CELL COUNT DECREASED [None]
  - THROMBOCYTOPENIA [None]
  - UPPER RESPIRATORY TRACT INFLAMMATION [None]
